FAERS Safety Report 21714498 (Version 1)
Quarter: 2022Q4

REPORT INFORMATION
  Report Type: Spontaneous
  Country: US (occurrence: US)
  Receive Date: 20221212
  Receipt Date: 20221212
  Transmission Date: 20230113
  Serious: Yes (Hospitalization, Other)
  Sender: FDA-Public Use
  Company Number: US-JUBILANT CADISTA PHARMACEUTICALS-2022JUB00462

PATIENT
  Age: 63 Year
  Sex: Male

DRUGS (3)
  1. MYCOPHENOLATE MOFETIL [Suspect]
     Active Substance: MYCOPHENOLATE MOFETIL
     Indication: Immunosuppressant drug therapy
     Dosage: UNK
  2. PREDNISONE [Suspect]
     Active Substance: PREDNISONE
     Indication: Immunosuppressant drug therapy
     Dosage: UNK
  3. TACROLIMUS [Suspect]
     Active Substance: TACROLIMUS
     Indication: Immunosuppressant drug therapy
     Dosage: UNK

REACTIONS (8)
  - Pseudomonas infection [Unknown]
  - Graft infection [Unknown]
  - Malacoplakia [Recovered/Resolved]
  - Cytomegalovirus viraemia [Unknown]
  - Septic shock [Recovered/Resolved]
  - Pulmonary air leakage [Recovered/Resolved]
  - Pleural adhesion [Recovered/Resolved]
  - Escherichia infection [Not Recovered/Not Resolved]
